FAERS Safety Report 7039742-0 (Version None)
Quarter: 2010Q4

REPORT INFORMATION
  Report Type: 
  Country: None (occurrence: None)
  Receive Date: 20101012
  Receipt Date: 20101004
  Transmission Date: 20110411
  Serious: Yes (Hospitalization)
  Sender: FDA-Public Use
  Company Number: GXKR2010GB11210

PATIENT
  Sex: Male

DRUGS (8)
  1. AMIODARONE HCL [Suspect]
     Indication: ARRHYTHMIA
     Dosage: 400 MG, TID
     Route: 048
  2. AMIODARONE HCL [Interacting]
     Dosage: 200 MG, QD
     Route: 048
  3. NEUPRO [Interacting]
     Dosage: 10 MG, QD
     Route: 062
     Dates: end: 20100923
  4. DIGOXIN [Concomitant]
     Dosage: 125 UG, QD
  5. FUROSEMIDE [Concomitant]
     Dosage: 120 MG
     Route: 065
  6. NITROGLYCERIN [Concomitant]
     Dosage: 5 MG, QD
     Route: 062
  7. MADOPAR [Concomitant]
     Dosage: 125 MG, QID
     Route: 048
  8. WARFARIN SODIUM [Concomitant]
     Route: 065

REACTIONS (3)
  - DELUSION [None]
  - DRUG INTERACTION [None]
  - HALLUCINATION [None]
